FAERS Safety Report 4705290-3 (Version None)
Quarter: 2005Q2

REPORT INFORMATION
  Report Type: 
  Country: None (occurrence: None)
  Receive Date: 20050629
  Receipt Date: 20050621
  Transmission Date: 20051028
  Serious: Yes (Other)
  Sender: FDA-Public Use
  Company Number: 200512024BCC

PATIENT
  Age: 75 Year
  Sex: Female
  Weight: 72.5755 kg

DRUGS (14)
  1. MILK OF MAGNESIA TAB [Suspect]
     Indication: CONSTIPATION
     Dosage: SEE IMAGE
     Route: 048
     Dates: start: 20050401
  2. MILK OF MAGNESIA TAB [Suspect]
     Indication: LAXATIVE SUPPORTIVE CARE
     Dosage: SEE IMAGE
     Route: 048
     Dates: start: 20050401
  3. MILK OF MAGNESIA TAB [Suspect]
     Indication: CONSTIPATION
     Dosage: SEE IMAGE
     Route: 048
     Dates: start: 20050511
  4. MILK OF MAGNESIA TAB [Suspect]
     Indication: LAXATIVE SUPPORTIVE CARE
     Dosage: SEE IMAGE
     Route: 048
     Dates: start: 20050511
  5. LASIX [Concomitant]
  6. POTASSIUM CHLORIDE [Concomitant]
  7. NORVASC [Concomitant]
  8. LISINOPRIL [Concomitant]
  9. ATENOLOL [Concomitant]
  10. CLONIDINE [Concomitant]
  11. LIPITOR [Concomitant]
  12. ECOTRIN [Concomitant]
  13. ARTHROTEC [Concomitant]
  14. PHENERGAN [Concomitant]

REACTIONS (3)
  - BLOOD PRESSURE DECREASED [None]
  - NAUSEA [None]
  - VOMITING [None]
